FAERS Safety Report 5830977-9 (Version None)
Quarter: 2008Q3

REPORT INFORMATION
  Report Type: 
  Country: None (occurrence: None)
  Receive Date: 20080801
  Receipt Date: 20080428
  Transmission Date: 20090109
  Serious: No
  Sender: FDA-Public Use
  Company Number: US-BRISTOL-MYERS SQUIBB COMPANY-14105373

PATIENT
  Age: 68 Year
  Sex: Female

DRUGS (4)
  1. COUMADIN [Suspect]
     Indication: ATRIAL FIBRILLATION
     Dosage: DOSE WAS INCREASED TO 37.5MG/WK(7.5MG ON TUE, 5MG ON REST OF THE WK); THEN INCREASED TO 7.5MG/DAY.
     Dates: start: 20080211
  2. TENORMIN [Concomitant]
  3. XANAX [Concomitant]
  4. ALTACE [Concomitant]

REACTIONS (1)
  - INTERNATIONAL NORMALISED RATIO DECREASED [None]
